FAERS Safety Report 7557359-6 (Version None)
Quarter: 2011Q2

REPORT INFORMATION
  Report Type: 
  Country: None (occurrence: None)
  Receive Date: 20110620
  Receipt Date: 20110606
  Transmission Date: 20111010
  Serious: Yes (Other)
  Sender: FDA-Public Use
  Company Number: PHHY2011JP36187

PATIENT
  Age: 80 Year
  Sex: Male

DRUGS (6)
  1. AMARYL [Concomitant]
     Dosage: 3 MG
     Route: 048
  2. METFORMIN HCL [Concomitant]
     Dosage: 250 MG
     Route: 048
  3. PRANLUKAST [Concomitant]
     Indication: PRODUCTIVE COUGH
     Dosage: 450 MG, UNK
     Route: 048
  4. DIOVAN [Suspect]
     Indication: HYPERTENSION
     Dosage: 80 MG, DAILY
     Route: 048
     Dates: end: 20110404
  5. CRESTOR [Concomitant]
     Dosage: UNK
     Route: 048
  6. AMARYL [Concomitant]
     Dosage: 6 MG, UNK

REACTIONS (5)
  - SKIN DISORDER [None]
  - RASH [None]
  - SKIN LESION [None]
  - ERYTHEMA [None]
  - ERYTHEMA MULTIFORME [None]
